FAERS Safety Report 6484746-X (Version None)
Quarter: 2009Q4

REPORT INFORMATION
  Report Type: 
  Country: None (occurrence: None)
  Receive Date: 20091209
  Receipt Date: 20090625
  Transmission Date: 20100525
  Serious: No
  Sender: FDA-Public Use
  Company Number: US-AMGEN-KDL350079

PATIENT
  Sex: Female
  Weight: 63.6 kg

DRUGS (4)
  1. ENBREL [Suspect]
     Indication: RHEUMATOID ARTHRITIS
     Route: 058
     Dates: start: 20090306
  2. MICARDIS [Concomitant]
  3. METHOTREXATE [Concomitant]
     Dates: start: 20090107
  4. FOLIC ACID [Concomitant]
     Dates: start: 20090107

REACTIONS (3)
  - INJECTION SITE ERYTHEMA [None]
  - INJECTION SITE REACTION [None]
  - INJECTION SITE URTICARIA [None]
